FAERS Safety Report 5684684-6 (Version None)
Quarter: 2008Q1

REPORT INFORMATION
  Report Type: 
  Country: None (occurrence: None)
  Receive Date: 20080328
  Receipt Date: 20070613
  Transmission Date: 20080703
  Serious: Yes (Death)
  Sender: FDA-Public Use
  Company Number: US-BRISTOL-MYERS SQUIBB COMPANY-13814090

PATIENT
  Age: 87 Year
  Sex: Female

DRUGS (7)
  1. ERBITUX [Suspect]
     Indication: NEOPLASM MALIGNANT
  2. RADIATION THERAPY [Suspect]
     Indication: NEOPLASM MALIGNANT
     Dates: start: 20060308, end: 20060505
  3. TYLENOL W/ CODEINE NO. 3 [Concomitant]
     Dates: start: 20060315
  4. MAGIC MOUTHWASH [Concomitant]
     Dates: start: 20060327
  5. DIFLUCAN [Concomitant]
     Dates: start: 20060329
  6. BIAXIN [Concomitant]
     Dates: start: 20060329
  7. NYSTATIN SWISH [Concomitant]
     Dates: start: 20060425

REACTIONS (4)
  - DISEASE PROGRESSION [None]
  - MALIGNANT NEOPLASM PROGRESSION [None]
  - RASH [None]
  - STOMATITIS [None]
